FAERS Safety Report 7445490-5 (Version None)
Quarter: 2011Q2

REPORT INFORMATION
  Report Type: 
  Country: None (occurrence: None)
  Receive Date: 20110420
  Receipt Date: 20110407
  Transmission Date: 20111010
  Serious: Yes (Hospitalization)
  Sender: FDA-Public Use
  Company Number: 2011MA003555

PATIENT
  Age: 79 Year
  Sex: Male
  Weight: 82 kg

DRUGS (6)
  1. ISONIAZID [Concomitant]
  2. ETHAMBUTOL HYDROCHLORIDE [Concomitant]
  3. PYRAZINAMIDE [Concomitant]
  4. PREDNISOLONE [Concomitant]
  5. LEVOFLOXACIN [Concomitant]
  6. RIFAMPIN [Suspect]
     Indication: TUBERCULOSIS
     Dosage: 450 MG;QD

REACTIONS (6)
  - TUBULOINTERSTITIAL NEPHRITIS [None]
  - RENAL IMPAIRMENT [None]
  - CONDITION AGGRAVATED [None]
  - ASPARTATE AMINOTRANSFERASE INCREASED [None]
  - ANAEMIA [None]
  - ALANINE AMINOTRANSFERASE INCREASED [None]
